FAERS Safety Report 7096210-8 (Version None)
Quarter: 2010Q4

REPORT INFORMATION
  Report Type: 
  Country: None (occurrence: None)
  Receive Date: 20101103
  Receipt Date: 20100928
  Transmission Date: 20110411
  Serious: Yes (Hospitalization)
  Sender: FDA-Public Use
  Company Number: JP-SOLVAY-00310004689

PATIENT
  Sex: Female

DRUGS (1)
  1. LUVOX [Suspect]
     Indication: DEPRESSION
     Dosage: 200 MILLIGRAM(S) ORAL
     Route: 048
     Dates: start: 19990621, end: 20100517

REACTIONS (5)
  - ANURIA [None]
  - CHEST PAIN [None]
  - INTERSTITIAL LUNG DISEASE [None]
  - SEROTONIN SYNDROME [None]
  - VOMITING [None]
